FAERS Safety Report 17250089 (Version 1)
Quarter: 2020Q1

REPORT INFORMATION
  Report Type: Other
  Country: US (occurrence: US)
  Receive Date: 20200109
  Receipt Date: 20200109
  Transmission Date: 20200409
  Serious: Yes (Hospitalization, Other)
  Sender: FDA-Public Use
  Company Number: US-ATLAS PHARMACEUTICALS, LLC-2078699

PATIENT
  Age: 74 Year
  Sex: Male

DRUGS (6)
  1. BETAXOLOL. [Concomitant]
     Active Substance: BETAXOLOL
     Route: 065
  2. TRIFLUSAL [Concomitant]
     Active Substance: TRIFLUSAL
     Route: 065
  3. EZETIMIBE AND SIMVASTATIN [Concomitant]
     Active Substance: EZETIMIBE\SIMVASTATIN
     Route: 065
  4. THYROXIN [Concomitant]
     Active Substance: LEVOTHYROXINE
     Route: 065
  5. IRBESARTAN AND HYDROCHLOROTHIAZIDE [Suspect]
     Active Substance: HYDROCHLOROTHIAZIDE\IRBESARTAN
     Indication: MYOCARDIAL ISCHAEMIA
     Route: 065
  6. LITHIUM. [Suspect]
     Active Substance: LITHIUM
     Route: 065

REACTIONS (3)
  - Dehydration [Unknown]
  - Neurotoxicity [Unknown]
  - Toxicity to various agents [Recovering/Resolving]
